FAERS Safety Report 23774995 (Version 1)
Quarter: 2024Q2

REPORT INFORMATION
  Report Type: Report from Study
  Country: MX (occurrence: None)
  Receive Date: 20240423
  Receipt Date: 20240423
  Transmission Date: 20240716
  Serious: Yes (Life-Threatening, Other)
  Sender: FDA-Public Use
  Company Number: 2024A095524

PATIENT
  Age: 19788 Day
  Sex: Female
  Weight: 64 kg

DRUGS (1)
  1. TEZSPIRE [Suspect]
     Active Substance: TEZEPELUMAB-EKKO
     Indication: Asthma
     Dosage: 1.0DF UNKNOWN
     Route: 058
     Dates: start: 20231204, end: 20240315

REACTIONS (4)
  - Anaphylactic shock [Unknown]
  - Seizure [Unknown]
  - Drug hypersensitivity [Recovered/Resolved]
  - Off label use [Unknown]

NARRATIVE: CASE EVENT DATE: 20231204
